FAERS Safety Report 4424604-5 (Version None)
Quarter: 2004Q3

REPORT INFORMATION
  Report Type: 
  Country: None (occurrence: None)
  Receive Date: 20040812
  Receipt Date: 20040804
  Transmission Date: 20050211
  Serious: Yes (Hospitalization)
  Sender: FDA-Public Use
  Company Number: PHBS2004JP10435

PATIENT
  Age: 69 Year
  Sex: Female
  Weight: 50 kg

DRUGS (6)
  1. DICLOFENAC SODIUM [Suspect]
     Indication: PYREXIA
     Dosage: 50 MG, QD
  2. CLINDAMYCIN [Concomitant]
     Indication: PYREXIA
  3. ETODOLAC [Concomitant]
  4. ACTARIT [Concomitant]
  5. MIZORIBINE [Suspect]
  6. PREDNISOLONE [Concomitant]

REACTIONS (9)
  - EPISTAXIS [None]
  - HAEMODIALYSIS [None]
  - HYPERURICAEMIA [None]
  - MELAENA [None]
  - NAUSEA [None]
  - PYREXIA [None]
  - RENAL FAILURE ACUTE [None]
  - SJOGREN'S SYNDROME [None]
  - THROMBOCYTOPENIA [None]
